FAERS Safety Report 20310169 (Version 1)
Quarter: 2022Q1

REPORT INFORMATION
  Report Type: Spontaneous
  Country: US (occurrence: US)
  Receive Date: 20220107
  Receipt Date: 20220107
  Transmission Date: 20220424
  Serious: Yes (Life-Threatening)
  Sender: FDA-Public Use
  Company Number: US-SAGENT PHARMACEUTICALS-2021SAG002993

PATIENT
  Age: 28 Year
  Sex: Female

DRUGS (1)
  1. OXYTOCIN [Suspect]
     Active Substance: OXYTOCIN
     Indication: Labour induction
     Dosage: 10 U, ONCE

REACTIONS (3)
  - Acute respiratory failure [Unknown]
  - Acute pulmonary oedema [Unknown]
  - Exposure during pregnancy [Unknown]
